FAERS Safety Report 9887776 (Version 1)
Quarter: 2014Q1

REPORT INFORMATION
  Report Type: Spontaneous
  Country: US (occurrence: US)
  Receive Date: 20140211
  Receipt Date: 20140211
  Transmission Date: 20141002
  Serious: Yes (Hospitalization, Other)
  Sender: FDA-Public Use
  Company Number: US-AMGEN-USASP2014008716

PATIENT
  Age: 79 Year
  Sex: Female

DRUGS (7)
  1. PROLIA [Suspect]
     Indication: OSTEOPOROSIS POSTMENOPAUSAL
     Dosage: UNK
     Route: 065
     Dates: start: 20110324
  2. REMERON [Concomitant]
  3. LISINOPRIL [Concomitant]
  4. LIPITOR [Concomitant]
  5. RISPERDAL [Concomitant]
  6. FLOMAX                             /00889901/ [Concomitant]
  7. AMBIEN [Concomitant]

REACTIONS (4)
  - Knee arthroplasty [Unknown]
  - Appendicitis [Unknown]
  - Ileus [Unknown]
  - Clostridium difficile infection [Not Recovered/Not Resolved]
